FAERS Safety Report 18729913 (Version 1)
Quarter: 2021Q1

REPORT INFORMATION
  Report Type: Spontaneous
  Country: US (occurrence: US)
  Receive Date: 20210112
  Receipt Date: 20210112
  Transmission Date: 20210419
  Serious: Yes (Hospitalization, Other)
  Sender: FDA-Public Use
  Company Number: None

PATIENT
  Age: 46 Year
  Sex: Male

DRUGS (10)
  1. HUMIRA [Suspect]
     Active Substance: ADALIMUMAB
     Indication: ANKYLOSING SPONDYLITIS
     Dosage: ?          OTHER FREQUENCY:ONCE A WEEK;?
     Route: 058
     Dates: start: 20190904
  2. CARISOPRODOL. [Concomitant]
     Active Substance: CARISOPRODOL
  3. SMZ/TMP DS [Concomitant]
     Active Substance: SULFAMETHOXAZOLE\TRIMETHOPRIM
  4. CLINDAMYCIN GEL [Concomitant]
     Active Substance: CLINDAMYCIN PHOSPHATE
  5. DEXAMETHASON [Concomitant]
     Active Substance: DEXAMETHASONE
  6. HYDROCO/APAP [Concomitant]
     Active Substance: ACETAMINOPHEN\HYDROCODONE
  7. DULOXETINE. [Concomitant]
     Active Substance: DULOXETINE
  8. AMITRIPTYLIN [Concomitant]
     Active Substance: AMITRIPTYLINE
  9. DOXYCYC MONO [Concomitant]
     Active Substance: DOXYCYCLINE
  10. ALPRAZOLAM. [Concomitant]
     Active Substance: ALPRAZOLAM

REACTIONS (3)
  - Therapy cessation [None]
  - Cyst [None]
  - Foot operation [None]
